FAERS Safety Report 9843403 (Version 1)
Quarter: 2013Q4

REPORT INFORMATION
  Report Type: Spontaneous
  Country: US (occurrence: None)
  Receive Date: 20131223
  Receipt Date: 20131223
  Transmission Date: 20140711
  Serious: No
  Sender: FDA-Public Use
  Company Number: 220118LEO

PATIENT
  Sex: Female

DRUGS (1)
  1. PICATO (0.05 %, GEL) [Suspect]
     Indication: ACTINIC KERATOSIS
     Dosage: ONCE DERMAL
     Dates: start: 20130109

REACTIONS (6)
  - Headache [None]
  - Application site pain [None]
  - Nasal discomfort [None]
  - Incorrect dose administered [None]
  - Incorrect product storage [None]
  - Incorrect drug administration duration [None]
